FAERS Safety Report 9163799 (Version 2)
Quarter: 2013Q2

REPORT INFORMATION
  Report Type: Report from Study
  Country: CA (occurrence: CA)
  Receive Date: 20130314
  Receipt Date: 20130424
  Transmission Date: 20140414
  Serious: No
  Sender: FDA-Public Use
  Company Number: CA-UCBSA-078151

PATIENT
  Age: 77 Year
  Sex: Male

DRUGS (11)
  1. CIMZIA [Suspect]
     Indication: RHEUMATOID ARTHRITIS
     Dosage: 400 MG WEEKLY
     Route: 058
     Dates: start: 20130116, end: 20130130
  2. CIMZIA [Suspect]
     Indication: RHEUMATOID ARTHRITIS
     Route: 058
     Dates: start: 2013, end: 20130213
  3. CIMZIA [Suspect]
     Indication: RHEUMATOID ARTHRITIS
     Route: 058
     Dates: start: 2013, end: 2013
  4. PREDNISONE [Concomitant]
     Indication: RHEUMATOID ARTHRITIS
     Route: 048
  5. TECTA [Concomitant]
     Indication: PROPHYLAXIS AGAINST GASTROINTESTINAL ULCER
     Route: 048
  6. TECTA [Concomitant]
     Indication: GASTROOESOPHAGEAL REFLUX DISEASE
     Route: 048
  7. LASIX [Concomitant]
     Indication: BENIGN PROSTATIC HYPERPLASIA
     Route: 048
  8. FLOMAX [Concomitant]
     Indication: BENIGN PROSTATIC HYPERPLASIA
     Route: 048
  9. SYMBICORT [Concomitant]
     Indication: PULMONARY FIBROSIS
     Dosage: ROUTE:INH ( INHALANTION)
     Route: 055
  10. SYMBICORT [Concomitant]
     Indication: ASTHMA
     Dosage: ROUTE:INH ( INHALANTION)
     Route: 055
  11. TYLENOL [Concomitant]
     Indication: RHEUMATOID ARTHRITIS
     Dosage: 1 TABLET TWICE DAILY
     Route: 048

REACTIONS (3)
  - Arthralgia [Recovered/Resolved]
  - Abdominal discomfort [Recovered/Resolved]
  - Inappropriate schedule of drug administration [Recovered/Resolved]
